FAERS Safety Report 19609464 (Version 1)
Quarter: 2021Q3

REPORT INFORMATION
  Report Type: Spontaneous
  Country: DE (occurrence: DE)
  Receive Date: 20210726
  Receipt Date: 20210726
  Transmission Date: 20211014
  Serious: Yes (Hospitalization)
  Sender: FDA-Public Use
  Company Number: DE-ACCORD-232976

PATIENT
  Age: 57 Year
  Sex: Female
  Weight: 74 kg

DRUGS (7)
  1. LEVOTHYROXINE. [Concomitant]
     Active Substance: LEVOTHYROXINE
     Dosage: 0.15 MG, 1?0?0?0, TABLETS
     Route: 048
  2. ATORVASTATIN/ATORVASTATIN CALCIUM [Suspect]
     Active Substance: ATORVASTATIN CALCIUM
     Indication: PRODUCT USED FOR UNKNOWN INDICATION
     Dosage: 80 MG, 0?0?1?0, TABLETS
     Route: 048
  3. RANOLAZINE. [Interacting]
     Active Substance: RANOLAZINE
     Indication: PRODUCT USED FOR UNKNOWN INDICATION
     Dosage: 375 MG, 0?0?1?0, PROLONGED?RELEASE TABLETS
     Route: 048
  4. PANTOPRAZOLE [Concomitant]
     Active Substance: PANTOPRAZOLE
     Dosage: 20 MG, 0?0?1?0, PROLONGED?RELEASE TABLET
     Route: 048
  5. METOPROLOL. [Concomitant]
     Active Substance: METOPROLOL
     Dosage: 47.5 MG, 0.5?0?0.5?0, PROLONGED?RELEASE TABLETS
     Route: 048
  6. IRON [Concomitant]
     Active Substance: IRON
     Dosage: 100 MG, 1?0?0?0, PROLONGED?RELEASE CAPSULES
     Route: 048
  7. ACETYLSALICYLIC ACID [Concomitant]
     Active Substance: ASPIRIN
     Dosage: 100 MG, 0?1?0?0, TABLETS
     Route: 048

REACTIONS (7)
  - Ocular icterus [Unknown]
  - Abdominal pain [Unknown]
  - Muscle spasms [Unknown]
  - Labelled drug-drug interaction medication error [Unknown]
  - Liver function test abnormal [Unknown]
  - Faeces pale [Unknown]
  - Chromaturia [Unknown]
